FAERS Safety Report 6604749-1 (Version None)
Quarter: 2010Q1

REPORT INFORMATION
  Report Type: 
  Country: None (occurrence: None)
  Receive Date: 20100226
  Receipt Date: 20100115
  Transmission Date: 20100710
  Serious: No
  Sender: FDA-Public Use
  Company Number: US-BRISTOL-MYERS SQUIBB COMPANY-14888481

PATIENT
  Age: 74 Year
  Sex: Male

DRUGS (14)
  1. ONGLYZA [Suspect]
     Indication: TYPE 2 DIABETES MELLITUS
     Dosage: 1 DOSAGE FORM=2.5-5MG.
     Route: 048
     Dates: start: 20091113
  2. ANTIBIOTICS [Concomitant]
  3. TESTOSTERONE [Concomitant]
  4. FOLIC ACID [Concomitant]
  5. FISH OIL [Concomitant]
  6. KYOLIC [Concomitant]
  7. LASIX [Concomitant]
  8. POTASSIUM [Concomitant]
  9. SAW PALMETTO [Concomitant]
  10. VITAMIN B-12 [Concomitant]
  11. VITAMIN C [Concomitant]
  12. MUCINEX [Concomitant]
  13. MAGNESIUM CARBONATE [Concomitant]
  14. COENZYME Q10 [Concomitant]

REACTIONS (1)
  - EPISTAXIS [None]
